FAERS Safety Report 6562788-3 (Version None)
Quarter: 2010Q1

REPORT INFORMATION
  Report Type: 
  Country: None (occurrence: None)
  Receive Date: 20100130
  Receipt Date: 20091118
  Transmission Date: 20100710
  Serious: No
  Sender: FDA-Public Use
  Company Number: US-ABBOTT-09P-163-0610081-00

PATIENT
  Sex: Female
  Weight: 83.99 kg

DRUGS (5)
  1. HUMIRA [Suspect]
     Indication: CROHN'S DISEASE
     Route: 058
     Dates: start: 20091021, end: 20091021
  2. HUMIRA [Suspect]
     Route: 058
     Dates: start: 20091104, end: 20091104
  3. HUMIRA [Suspect]
     Route: 058
     Dates: start: 20091118
  4. METHOTREXATE [Concomitant]
     Indication: TAKAYASU'S ARTERITIS
     Dates: start: 20080101
  5. PREDNISONE [Concomitant]
     Indication: TAKAYASU'S ARTERITIS
     Dates: start: 20080101

REACTIONS (2)
  - OEDEMA MOUTH [None]
  - STOMATITIS [None]
